FAERS Safety Report 25909586 (Version 2)
Quarter: 2025Q4

REPORT INFORMATION
  Report Type: Spontaneous
  Country: US (occurrence: US)
  Receive Date: 20251011
  Receipt Date: 20251226
  Transmission Date: 20260118
  Serious: No
  Sender: SANOFI AVENTIS
  Company Number: US-SA-2025SA302866

PATIENT
  Sex: Female
  Weight: 59.18 kg

DRUGS (4)
  1. KEVZARA [Suspect]
     Active Substance: SARILUMAB
     Indication: Illness
     Dosage: 200 MG, QOW
     Route: 058
  2. KEVZARA [Suspect]
     Active Substance: SARILUMAB
     Indication: Rheumatoid arthritis
  3. VITAMINS [Concomitant]
     Active Substance: VITAMINS
  4. VITAMIN C [Concomitant]
     Active Substance: ASCORBIC ACID

REACTIONS (3)
  - Pain [Not Recovered/Not Resolved]
  - Trigger points [Not Recovered/Not Resolved]
  - Drug ineffective [Unknown]
